FAERS Safety Report 6699049-8 (Version None)
Quarter: 2010Q2

REPORT INFORMATION
  Report Type: 
  Country: None (occurrence: None)
  Receive Date: 20100427
  Receipt Date: 20100422
  Transmission Date: 20101027
  Serious: Yes (Hospitalization)
  Sender: FDA-Public Use
  Company Number: US-GILEAD-2010-0028698

PATIENT
  Sex: Male
  Weight: 108.2 kg

DRUGS (13)
  1. LETAIRIS [Suspect]
     Indication: PULMONARY ARTERIAL HYPERTENSION
     Route: 048
     Dates: start: 20100216
  2. REVATIO [Concomitant]
  3. LASIX [Concomitant]
  4. CARDIZEM [Concomitant]
  5. SOTALOL HCL [Concomitant]
  6. LOVAZA [Concomitant]
  7. ALBUTEROL [Concomitant]
  8. SYMBICORT [Concomitant]
  9. PREVACID [Concomitant]
  10. LEVOTHYROXINE SODIUM [Concomitant]
  11. ALLOPURINOL [Concomitant]
  12. CENTRUM SILVER [Concomitant]
  13. K-DUR [Concomitant]

REACTIONS (1)
  - PNEUMONIA [None]
